FAERS Safety Report 17243604 (Version 2)
Quarter: 2020Q1

REPORT INFORMATION
  Report Type: Spontaneous
  Country: FI (occurrence: FI)
  Receive Date: 20200107
  Receipt Date: 20200221
  Transmission Date: 20200409
  Serious: Yes (Other)
  Sender: FDA-Public Use
  Company Number: FI-JNJFOC-20191248933

PATIENT
  Sex: Male

DRUGS (1)
  1. XEPLION [Suspect]
     Active Substance: PALIPERIDONE PALMITATE
     Indication: PSYCHOTIC DISORDER
     Route: 030
     Dates: start: 201901

REACTIONS (34)
  - Headache [Unknown]
  - Blood prolactin increased [Unknown]
  - Depression [Unknown]
  - Insomnia [Unknown]
  - Speech disorder [Unknown]
  - Blood luteinising hormone decreased [Unknown]
  - Apathy [Unknown]
  - Heart rate increased [Unknown]
  - Anxiety [Unknown]
  - Loss of libido [Unknown]
  - Erectile dysfunction [Unknown]
  - Decreased interest [Unknown]
  - Hallucination, auditory [Unknown]
  - Memory impairment [Unknown]
  - Herbal interaction [Unknown]
  - Hypoaesthesia [Unknown]
  - Social avoidant behaviour [Unknown]
  - Feeling abnormal [Unknown]
  - Restlessness [Unknown]
  - Akathisia [Unknown]
  - Sleep disorder [Unknown]
  - Dysuria [Unknown]
  - Thinking abnormal [Unknown]
  - Anhedonia [Unknown]
  - Suicidal ideation [Unknown]
  - Physical disability [Unknown]
  - Blood testosterone decreased [Unknown]
  - Disturbance in attention [Unknown]
  - Weight increased [Unknown]
  - Derealisation [Unknown]
  - Nightmare [Unknown]
  - Blindness transient [Unknown]
  - Emotional poverty [Unknown]
  - Blood pressure increased [Unknown]

NARRATIVE: CASE EVENT DATE: 2019
